FAERS Safety Report 13036376 (Version 1)
Quarter: 2016Q4

REPORT INFORMATION
  Report Type: Report from Study
  Country: JP (occurrence: JP)
  Receive Date: 20161216
  Receipt Date: 20161216
  Transmission Date: 20170207
  Serious: Yes (Other)
  Sender: FDA-Public Use
  Company Number: JP-FERRINGPH-2016FE06527

PATIENT

DRUGS (2)
  1. PROGESTERONE. [Suspect]
     Active Substance: PROGESTERONE
     Indication: ASSISTED FERTILISATION
     Dosage: 300 MG, DAILY
     Route: 067
     Dates: start: 20160122, end: 20160224
  2. PLANOVAR [Concomitant]
     Active Substance: ETHINYL ESTRADIOL\NORGESTREL
     Indication: PREGNANCY
     Dosage: 1 DF, DAILY
     Route: 048
     Dates: start: 20160111, end: 20160224

REACTIONS (1)
  - Benign hydatidiform mole [Unknown]

NARRATIVE: CASE EVENT DATE: 20160221
